FAERS Safety Report 8041751-X (Version None)
Quarter: 2012Q1

REPORT INFORMATION
  Report Type: 
  Country: None (occurrence: None)
  Receive Date: 20120112
  Receipt Date: 20111219
  Transmission Date: 20120608
  Serious: Yes (Death, Other)
  Sender: FDA-Public Use
  Company Number: PHHY2011TH115111

PATIENT
  Age: 65 Year
  Sex: Male

DRUGS (1)
  1. GLEEVEC [Suspect]
     Indication: CHRONIC MYELOID LEUKAEMIA
     Dosage: 400 MG, AFTER DINNER

REACTIONS (5)
  - METASTASES TO LUNG [None]
  - DYSPNOEA [None]
  - DEATH [None]
  - FATIGUE [None]
  - NEOPLASM MALIGNANT [None]
